FAERS Safety Report 23384853 (Version 3)
Quarter: 2024Q2

REPORT INFORMATION
  Report Type: Spontaneous
  Country: JP (occurrence: JP)
  Receive Date: 20240109
  Receipt Date: 20240409
  Transmission Date: 20240715
  Serious: Yes (Hospitalization, Other)
  Sender: FDA-Public Use
  Company Number: JP-ONO-2024JP000269

PATIENT
  Age: 75 Year
  Sex: Male
  Weight: 51.8 kg

DRUGS (6)
  1. OPDIVO [Suspect]
     Active Substance: NIVOLUMAB
     Indication: Gastric cancer
     Dosage: UNK
     Route: 041
     Dates: start: 20230210, end: 20230530
  2. TS-1 [Concomitant]
     Active Substance: GIMERACIL\OTERACIL POTASSIUM\TEGAFUR
     Indication: Gastric cancer
     Dosage: ORAL DRUG UNSPECIFIED FORM
     Route: 048
     Dates: start: 202103
  3. TS-1 [Concomitant]
     Active Substance: GIMERACIL\OTERACIL POTASSIUM\TEGAFUR
     Dosage: ORAL DRUG UNSPECIFIED FORM
     Route: 048
     Dates: start: 20230210
  4. TS-1 [Concomitant]
     Active Substance: GIMERACIL\OTERACIL POTASSIUM\TEGAFUR
     Dosage: ORAL DRUG UNSPECIFIED FORM
     Route: 048
     Dates: start: 20230509
  5. TS-1 [Concomitant]
     Active Substance: GIMERACIL\OTERACIL POTASSIUM\TEGAFUR
     Dosage: 100 MG (2-WEEK-ON/1-WEEK-OFF [ORAL])
     Route: 048
     Dates: start: 20230721
  6. OXALIPLATIN [Concomitant]
     Active Substance: OXALIPLATIN
     Indication: Gastric cancer
     Dosage: UNK
     Dates: start: 20230210, end: 20230303

REACTIONS (6)
  - Oral lichen planus [Recovered/Resolved]
  - Weight decreased [Unknown]
  - Immune-mediated hypothyroidism [Recovered/Resolved]
  - Oral candidiasis [Unknown]
  - Aspartate aminotransferase abnormal [Recovered/Resolved]
  - Alanine aminotransferase abnormal [Recovered/Resolved]

NARRATIVE: CASE EVENT DATE: 20230530
